FAERS Safety Report 17227998 (Version 2)
Quarter: 2020Q1

REPORT INFORMATION
  Report Type: Spontaneous
  Country: US (occurrence: US)
  Receive Date: 20200103
  Receipt Date: 20200124
  Transmission Date: 20200409
  Serious: No
  Sender: FDA-Public Use
  Company Number: US-EMD SERONO-9134814

PATIENT
  Age: 52 Year
  Sex: Female

DRUGS (3)
  1. REBIF [Suspect]
     Active Substance: INTERFERON BETA-1A
     Dosage: 0.5 ML
     Route: 058
     Dates: start: 20180115
  2. REBIF [Suspect]
     Active Substance: INTERFERON BETA-1A
     Dosage: 0.5ML
     Route: 058
     Dates: start: 20190618, end: 202001
  3. REBIF [Suspect]
     Active Substance: INTERFERON BETA-1A
     Indication: MULTIPLE SCLEROSIS
     Route: 058
     Dates: start: 2009

REACTIONS (14)
  - Influenza like illness [Unknown]
  - Memory impairment [Unknown]
  - Muscle spasms [Unknown]
  - Pain in extremity [Unknown]
  - Spinal pain [Not Recovered/Not Resolved]
  - Injection site bruising [Unknown]
  - Stress [Unknown]
  - Feeling abnormal [Unknown]
  - Mood altered [Unknown]
  - Product dose omission [Unknown]
  - Headache [Unknown]
  - Musculoskeletal stiffness [Recovering/Resolving]
  - Gait disturbance [Recovering/Resolving]
  - Drug ineffective [Unknown]

NARRATIVE: CASE EVENT DATE: 20191231
